FAERS Safety Report 6644283-6 (Version None)
Quarter: 2010Q1

REPORT INFORMATION
  Report Type: 
  Country: None (occurrence: None)
  Receive Date: 20100322
  Receipt Date: 20100310
  Transmission Date: 20100710
  Serious: No
  Sender: FDA-Public Use
  Company Number: US-JNJFOC-20070706724

PATIENT
  Sex: Female
  Weight: 105.69 kg

DRUGS (10)
  1. DURAGESIC-100 [Suspect]
     Indication: PAIN
     Route: 062
  2. DURAGESIC-100 [Suspect]
     Indication: MULTIPLE SCLEROSIS
     Route: 062
  3. DURAGESIC-100 [Suspect]
     Route: 062
  4. PROZAC [Concomitant]
     Indication: DEPRESSION
     Route: 048
  5. LEVOTHROID [Concomitant]
     Indication: THYROID DISORDER
     Route: 048
  6. MULTI-VITAMIN [Concomitant]
     Route: 048
  7. HYDROXYZINE [Concomitant]
     Indication: PRURITUS
     Route: 048
  8. COPAXONE [Concomitant]
     Indication: MULTIPLE SCLEROSIS
     Route: 058
  9. TRAMADOL HYDROCHLORIDE AND ACETAMINOPHEN [Concomitant]
     Indication: PAIN
     Dosage: 37.5-325MG, 1 EVERY 8 HOURS AS NEEDED
     Route: 048
  10. TRAZODONE HCL [Concomitant]
     Indication: PAIN
     Dosage: 1 EVERY 6 HOURS AS NEEDED
     Route: 048

REACTIONS (8)
  - APPLICATION SITE ERYTHEMA [None]
  - APPLICATION SITE PRURITUS [None]
  - DRUG INEFFECTIVE [None]
  - MUSCLE SPASMS [None]
  - PRODUCT QUALITY ISSUE [None]
  - PRURITUS GENERALISED [None]
  - TREMOR [None]
  - WRONG TECHNIQUE IN DRUG USAGE PROCESS [None]
